FAERS Safety Report 13581694 (Version 1)
Quarter: 2017Q2

REPORT INFORMATION
  Report Type: Spontaneous
  Country: US (occurrence: US)
  Receive Date: 20170525
  Receipt Date: 20170525
  Transmission Date: 20170830
  Serious: Yes (Other)
  Sender: FDA-Public Use
  Company Number: US-BECTON DICKINSON-2016BDN00351

PATIENT

DRUGS (1)
  1. CHLORAPREP WITH TINT [Suspect]
     Active Substance: CHLORHEXIDINE GLUCONATE\ISOPROPYL ALCOHOL
     Indication: INFECTION PROPHYLAXIS
     Dosage: UNK, TWICE
     Route: 061
     Dates: start: 20090201, end: 20090201

REACTIONS (3)
  - Wrong technique in product usage process [Recovered/Resolved]
  - Thermal burn [Unknown]
  - Accident [Recovered/Resolved]

NARRATIVE: CASE EVENT DATE: 20090201
